FAERS Safety Report 8417887-8 (Version None)
Quarter: 2012Q2

REPORT INFORMATION
  Report Type: 
  Country: None (occurrence: None)
  Receive Date: 20120607
  Receipt Date: 20120604
  Transmission Date: 20120825
  Serious: No
  Sender: FDA-Public Use
  Company Number: US-PFIZER INC-2012134767

PATIENT
  Sex: Female
  Weight: 91 kg

DRUGS (5)
  1. NEURONTIN [Suspect]
     Indication: NEURALGIA
     Dosage: 1200 MG, 3X/DAY
  2. CADUET [Concomitant]
     Indication: BLOOD CHOLESTEROL INCREASED
  3. LORTAB [Concomitant]
     Indication: NEURALGIA
  4. CADUET [Concomitant]
     Indication: HYPERTENSION
     Dosage: 10/5 MG,DAILY
  5. LORTAB [Concomitant]
     Indication: ARTHRITIS
     Dosage: 10 MG, 2X/DAY

REACTIONS (1)
  - PAIN [None]
